FAERS Safety Report 7214092-8 (Version None)
Quarter: 2010Q4

REPORT INFORMATION
  Report Type: 
  Country: None (occurrence: None)
  Receive Date: 20101227
  Receipt Date: 20101220
  Transmission Date: 20110411
  Serious: Yes (Hospitalization)
  Sender: FDA-Public Use
  Company Number: FR-1184475

PATIENT
  Age: 75 Year
  Sex: Female

DRUGS (12)
  1. CILOXAN [Suspect]
     Dosage: 1 GTT QD  OPHTHALMIC
     Route: 047
     Dates: start: 20100914, end: 20101011
  2. IMMUGRIP (INFLUENZA VACCINE) INJECTION [Suspect]
     Dosage: SUBCUTANIOUS
     Route: 058
  3. JANUMET [Suspect]
     Dosage: 2 DF BID SUBCUTANEOUS,  ORAL
     Route: 058
     Dates: start: 20100701, end: 20101012
  4. SIMVASTATIN [Concomitant]
  5. PROPRANOLOL [Concomitant]
  6. NEURONTIN [Concomitant]
  7. NEURONTIN [Concomitant]
  8. CLONAZEPAM [Concomitant]
  9. AMITRIPTYLINE HCL [Concomitant]
  10. SEROPLEX (ESCITALOPRAM OXALALE) [Concomitant]
  11. LOCERYL (AMOROLFINE HYDROCHLORIDE) [Concomitant]
  12. IMOVANE (ZOPICLONE) [Concomitant]

REACTIONS (3)
  - CONTUSION [None]
  - PURPURA [None]
  - THROMBOCYTOPENIA [None]
